FAERS Safety Report 9322821 (Version 3)
Quarter: 2014Q1

REPORT INFORMATION
  Report Type: Spontaneous
  Country: US (occurrence: US)
  Receive Date: 20130601
  Receipt Date: 20140106
  Transmission Date: 20141002
  Serious: Yes (Other)
  Sender: FDA-Public Use
  Company Number: US-ASTRAZENECA-2013SE38675

PATIENT
  Age: 650 Month
  Sex: Female
  Weight: 68 kg

DRUGS (11)
  1. NEXIUM [Suspect]
     Indication: ULCER
     Route: 048
     Dates: start: 200205, end: 200503
  2. NEXIUM [Suspect]
     Indication: GASTROOESOPHAGEAL REFLUX DISEASE
     Route: 048
     Dates: start: 200205, end: 200503
  3. NEXIUM [Suspect]
     Indication: ULCER
     Route: 048
     Dates: start: 20040322
  4. NEXIUM [Suspect]
     Indication: GASTROOESOPHAGEAL REFLUX DISEASE
     Route: 048
     Dates: start: 20040322
  5. NEXIUM [Suspect]
     Indication: ULCER
     Route: 048
     Dates: start: 2005
  6. NEXIUM [Suspect]
     Indication: GASTROOESOPHAGEAL REFLUX DISEASE
     Route: 048
     Dates: start: 2005
  7. PRILOSEC OTC [Suspect]
     Route: 048
  8. ASPIRIN [Concomitant]
     Dates: start: 200910
  9. KLONOPIN [Concomitant]
     Dates: start: 200910
  10. SINGULAIR [Concomitant]
     Dates: start: 200910
  11. ZEGERID [Concomitant]
     Dates: start: 200910

REACTIONS (7)
  - Fall [Unknown]
  - Ankle fracture [Unknown]
  - Cataract [Unknown]
  - Osteoporosis [Unknown]
  - Bone disorder [Unknown]
  - Hyperthyroidism [Unknown]
  - Osteopenia [Unknown]
